FAERS Safety Report 7579493-7 (Version None)
Quarter: 2011Q2

REPORT INFORMATION
  Report Type: 
  Country: None (occurrence: None)
  Receive Date: 20110629
  Receipt Date: 20110614
  Transmission Date: 20111010
  Serious: Yes (Other)
  Sender: FDA-Public Use
  Company Number: US-JNJFOC-20110608029

PATIENT
  Sex: Female
  Weight: 62.14 kg

DRUGS (1)
  1. ORTHO TRI-CYCLEN LO [Suspect]
     Indication: OVARIAN CYST
     Route: 048
     Dates: start: 20050101

REACTIONS (5)
  - DRUG DOSE OMISSION [None]
  - ALOPECIA [None]
  - OFF LABEL USE [None]
  - HYPOTHYROIDISM [None]
  - INAPPROPRIATE SCHEDULE OF DRUG ADMINISTRATION [None]
